FAERS Safety Report 17583662 (Version 4)
Quarter: 2020Q3

REPORT INFORMATION
  Report Type: Spontaneous
  Country: DE (occurrence: DE)
  Receive Date: 20200326
  Receipt Date: 20200720
  Transmission Date: 20201102
  Serious: Yes (Life-Threatening, Other)
  Sender: FDA-Public Use
  Company Number: DE-SUN PHARMACEUTICAL INDUSTRIES LTD-2020R1-241489

PATIENT
  Age: 74 Year
  Sex: Female

DRUGS (9)
  1. PREDNISOLONE. [Suspect]
     Active Substance: PREDNISOLONE
     Indication: DIFFUSE LARGE B-CELL LYMPHOMA
     Dosage: 100 MILLIGRAM, MODIFIED R?CHOP REGIMEN WAS ADMINISTERED IN 4?WEEKLY INTERVALS
     Route: 065
  2. PREDNISOLONE. [Suspect]
     Active Substance: PREDNISOLONE
     Indication: NEOPLASM PROGRESSION
  3. RITUXIMAB. [Suspect]
     Active Substance: RITUXIMAB
     Indication: DIFFUSE LARGE B-CELL LYMPHOMA
     Dosage: MODIFIED R?CHOP REGIMEN WAS ADMINISTERED IN 4?WEEKLY INTERVALS
     Route: 065
  4. RITUXIMAB. [Suspect]
     Active Substance: RITUXIMAB
     Indication: NEOPLASM PROGRESSION
  5. ENDOXAN LYOPHILISAT [Suspect]
     Active Substance: CYCLOPHOSPHAMIDE
     Indication: NEOPLASM PROGRESSION
     Dosage: 750 MILLIGRAM/SQ. METER, 6 COURSES IN 4 WEEKLY INTERVALS WITH 50 PERCENT DOSE REDUCTION
     Route: 065
  6. CYCLOPHOPHAMIDE [Suspect]
     Active Substance: CYCLOPHOSPHAMIDE
     Indication: DIFFUSE LARGE B-CELL LYMPHOMA
     Dosage: 750 MILLIGRAM/SQ. METER, MODIFIED R?CHOP REGIMEN WAS ADMINISTERED IN 4?WEEKLY INTERVALS.
     Route: 065
  7. DOXORUBICIN [Suspect]
     Active Substance: DOXORUBICIN
     Indication: IMMUNOCHEMOTHERAPY
     Dosage: UNK
     Route: 065
  8. VINCRISTINE [Suspect]
     Active Substance: VINCRISTINE
     Indication: NEOPLASM PROGRESSION
     Dosage: 1,4 MG/M2) 6 COURSES IN 4 WEEKLY INTERVALS WITH 50 PERCENT DOSE REDUCTION ()
     Route: 065
  9. LIPOSOMAL DOXORUBICIN [Suspect]
     Active Substance: DOXORUBICIN HYDROCHLORIDE
     Indication: DIFFUSE LARGE B-CELL LYMPHOMA
     Dosage: 20 MICROGRAM/SQ. METERMODIFIED R?CHOP REGIMEN WAS ADMINISTERED IN 4?WEEKLY INTERVALS. (6 COURSES IN
     Route: 065

REACTIONS (12)
  - Leukopenia [Unknown]
  - Agitation [Unknown]
  - Hyperglycaemia [Unknown]
  - Pyrexia [Unknown]
  - Infection [Unknown]
  - Blood creatinine increased [Unknown]
  - Nausea [Unknown]
  - Diarrhoea [Unknown]
  - Thrombosis [Unknown]
  - Anaemia [Unknown]
  - Cholestasis [Unknown]
  - Disease progression [Unknown]
